FAERS Safety Report 9798229 (Version 2)
Quarter: 2014Q1

REPORT INFORMATION
  Report Type: Spontaneous
  Country: US (occurrence: US)
  Receive Date: 20140106
  Receipt Date: 20140213
  Transmission Date: 20141002
  Serious: No
  Sender: FDA-Public Use
  Company Number: US-ROXANE LABORATORIES, INC.-2014-RO-00004RO

PATIENT
  Age: 90 Year
  Sex: Female

DRUGS (1)
  1. RAMIPRIL [Suspect]
     Indication: HYPERTENSION
     Dosage: 2.5 MG
     Route: 048
     Dates: start: 20131115, end: 20131231

REACTIONS (3)
  - Drug ineffective [Recovered/Resolved]
  - Cough [Not Recovered/Not Resolved]
  - Product quality issue [Unknown]
